FAERS Safety Report 24534160 (Version 1)
Quarter: 2024Q4

REPORT INFORMATION
  Report Type: Report from Study
  Country: US (occurrence: US)
  Receive Date: 20241022
  Receipt Date: 20241022
  Transmission Date: 20250114
  Serious: Yes (Death, Other)
  Sender: ALEXION PHARMACEUTICALS
  Company Number: US-AstraZeneca-CH-00727913A

PATIENT
  Age: 69 Year

DRUGS (4)
  1. TRUQAP [Suspect]
     Active Substance: CAPIVASERTIB
     Dosage: 400 MILLIGRAM, BID
  2. TRUQAP [Suspect]
     Active Substance: CAPIVASERTIB
     Dosage: 400 MILLIGRAM, BID
  3. TRUQAP [Suspect]
     Active Substance: CAPIVASERTIB
     Dosage: 400 MILLIGRAM, BID
  4. TRUQAP [Suspect]
     Active Substance: CAPIVASERTIB
     Dosage: 400 MILLIGRAM, BID

REACTIONS (1)
  - Death [Fatal]
